FAERS Safety Report 10004513 (Version 1)
Quarter: 2014Q1

REPORT INFORMATION
  Report Type: Spontaneous
  Country: FR (occurrence: FR)
  Receive Date: 20140312
  Receipt Date: 20140312
  Transmission Date: 20141002
  Serious: Yes (Death)
  Sender: FDA-Public Use
  Company Number: FR-PFIZER INC-2014070920

PATIENT
  Age: 59 Year
  Sex: Male

DRUGS (5)
  1. SOLU-MEDROL [Suspect]
     Indication: PREMEDICATION
     Dosage: 1 DF, SINGLE
     Route: 042
     Dates: start: 20140204, end: 20140204
  2. ERBITUX [Suspect]
     Indication: COLON CANCER METASTATIC
     Dosage: 840 MG, CYCLIC (2 CYCLES)
     Route: 042
     Dates: start: 20140120, end: 20140204
  3. OXALIPLATIN ACCORD [Suspect]
     Indication: COLON CANCER METASTATIC
     Dosage: 145 MG, CYCLIC (2 CYCLES)
     Route: 042
     Dates: start: 20140120, end: 20140204
  4. ONDANSETRON [Suspect]
     Indication: PREMEDICATION
     Dosage: 8 MG, SINGLE
     Route: 042
     Dates: start: 20140204, end: 20140204
  5. POLARAMINE [Suspect]
     Indication: PREMEDICATION
     Dosage: 5 MG, SINGLE
     Route: 042
     Dates: start: 20140204, end: 20140204

REACTIONS (1)
  - Cardiac arrest [Fatal]
